FAERS Safety Report 6237491-X (Version None)
Quarter: 2009Q2

REPORT INFORMATION
  Report Type: 
  Country: None (occurrence: None)
  Receive Date: 20090619
  Receipt Date: 20081215
  Transmission Date: 20091009
  Serious: No
  Sender: FDA-Public Use
  Company Number: US-AMGEN-KDL323907

PATIENT
  Sex: Female

DRUGS (4)
  1. ARANESP [Suspect]
     Indication: HEPATITIS C
  2. NEUPOGEN [Suspect]
     Indication: HEPATITIS C
  3. PEGASYS [Concomitant]
  4. RIBAVIRIN [Concomitant]

REACTIONS (2)
  - INJECTION SITE IRRITATION [None]
  - INJECTION SITE SWELLING [None]
